FAERS Safety Report 9034863 (Version 2)
Quarter: 2013Q2

REPORT INFORMATION
  Report Type: Report from Study
  Country: HU (occurrence: HU)
  Receive Date: 20130128
  Receipt Date: 20130401
  Transmission Date: 20140414
  Serious: Yes (Death, Other)
  Sender: FDA-Public Use
  Company Number: PHHY2013HU007124

PATIENT
  Age: 58 Year
  Sex: Female
  Weight: 80 kg

DRUGS (1)
  1. CGS 20267 [Suspect]
     Indication: BREAST CANCER
     Dosage: 2.5 MG, DAILY
     Route: 048
     Dates: start: 200805

REACTIONS (6)
  - Glioblastoma [Fatal]
  - Malignant melanoma [Fatal]
  - Second primary malignancy [Fatal]
  - Hemiparesis [Unknown]
  - Vulval cancer metastatic [Unknown]
  - Urinary incontinence [Unknown]
